FAERS Safety Report 8114513-2 (Version None)
Quarter: 2012Q1

REPORT INFORMATION
  Report Type: 
  Country: None (occurrence: None)
  Receive Date: 20120206
  Receipt Date: 20120131
  Transmission Date: 20120608
  Serious: No
  Sender: FDA-Public Use
  Company Number: US-PFIZER INC-2012027332

PATIENT
  Age: 10 Year
  Sex: Male
  Weight: 45.351 kg

DRUGS (1)
  1. ZOLOFT [Suspect]
     Dosage: 200 MG, UNK

REACTIONS (1)
  - HEADACHE [None]
